FAERS Safety Report 8140325-X (Version None)
Quarter: 2012Q1

REPORT INFORMATION
  Report Type: 
  Country: None (occurrence: None)
  Receive Date: 20120216
  Receipt Date: 20120212
  Transmission Date: 20120608
  Serious: No
  Sender: FDA-Public Use
  Company Number: US-PFIZER INC-2012038367

PATIENT
  Age: 62 Year
  Sex: Female

DRUGS (1)
  1. XALATAN [Suspect]
     Dosage: ONCE DAILY AT NIGHT

REACTIONS (1)
  - PAIN [None]
